FAERS Safety Report 5480746-7 (Version None)
Quarter: 2007Q3

REPORT INFORMATION
  Report Type: 
  Country: None (occurrence: None)
  Receive Date: 20070913
  Receipt Date: 20070503
  Transmission Date: 20080115
  Serious: Yes (Other)
  Sender: FDA-Public Use
  Company Number: PHEH2007US06087

PATIENT
  Sex: Female

DRUGS (3)
  1. DIOVAN [Suspect]
     Indication: HYPERTENSION
     Dosage: 160 MG, QD, ORAL
     Route: 048
     Dates: start: 20070328
  2. TEKTURNA [Suspect]
     Indication: HYPERTENSION
     Dosage: 150 MG, QD, ORAL
     Route: 048
     Dates: start: 20070411
  3. ATENOLOL [Suspect]

REACTIONS (3)
  - BLOOD PRESSURE INADEQUATELY CONTROLLED [None]
  - BLOOD PRESSURE INCREASED [None]
  - DRUG ADMINISTRATION ERROR [None]
